FAERS Safety Report 12383649 (Version 2)
Quarter: 2016Q3

REPORT INFORMATION
  Report Type: Spontaneous
  Country: DE (occurrence: DE)
  Receive Date: 20160519
  Receipt Date: 20160708
  Transmission Date: 20161109
  Serious: Yes (Hospitalization)
  Sender: FDA-Public Use
  Company Number: DE-009507513-1605DEU008567

PATIENT
  Age: 56 Year
  Sex: Male

DRUGS (3)
  1. KEYTRUDA [Suspect]
     Active Substance: PEMBROLIZUMAB
     Indication: MALIGNANT MELANOMA
     Dosage: UNK, 5  CYCLES
     Dates: start: 201310, end: 201411
  2. KEYTRUDA [Suspect]
     Active Substance: PEMBROLIZUMAB
     Dosage: 2 MG/KG BODY WEIGHT, Q3W (EVENT OCCURRED IN APPROXIMATELY CYCLE 9)
     Dates: start: 20150504
  3. ASPIRIN. [Concomitant]
     Active Substance: ASPIRIN
     Dosage: 100 (UNITS UNSPECIFIED), BID
     Dates: start: 201510

REACTIONS (1)
  - Tracheobronchitis [Recovered/Resolved]

NARRATIVE: CASE EVENT DATE: 201508
